FAERS Safety Report 7042251-6 (Version None)
Quarter: 2010Q4

REPORT INFORMATION
  Report Type: 
  Country: None (occurrence: None)
  Receive Date: 20101013
  Receipt Date: 20101004
  Transmission Date: 20110411
  Serious: Yes (Hospitalization)
  Sender: FDA-Public Use
  Company Number: US-JNJFOC-20100306458

PATIENT
  Sex: Female
  Weight: 83.92 kg

DRUGS (14)
  1. LEVAQUIN [Suspect]
     Indication: URINARY TRACT INFECTION
     Route: 048
     Dates: start: 20100209, end: 20100218
  2. LEVAQUIN [Suspect]
     Indication: KIDNEY INFECTION
     Route: 048
     Dates: start: 20100209, end: 20100218
  3. FLEXERIL [Concomitant]
     Route: 048
  4. LEXAPRO [Concomitant]
     Indication: DEPRESSION
     Route: 048
  5. ALLEGRA D 24 HOUR [Concomitant]
     Indication: MULTIPLE ALLERGIES
     Route: 048
  6. PRILOSEC [Concomitant]
     Indication: GASTROOESOPHAGEAL REFLUX DISEASE
     Route: 048
  7. SYNTHROID [Concomitant]
     Indication: HYPOTHYROIDISM
     Route: 048
  8. VIVELLE [Concomitant]
     Indication: MENOPAUSAL SYMPTOMS
     Dosage: 0.05 MG/24 HOURS TWICE WEEKLY, 1 PATCH 1 EVERY OTHER DAY
     Route: 062
  9. PERCOCET [Concomitant]
     Indication: PAIN
     Route: 048
  10. PREDNISONE [Concomitant]
     Indication: SWELLING
     Route: 048
  11. PREDNISONE [Concomitant]
     Indication: PAIN
     Route: 048
  12. LIDODERM [Concomitant]
     Dosage: FILM OF 5 % APPLIED TOPICALLY
     Route: 061
  13. KAPIDEX [Concomitant]
     Dosage: FOR 30 DAYS
     Route: 048
  14. LORTAB [Concomitant]
     Dosage: 10 TABLET, 500 MG- 10 MG 1 TABS EVERY 6 HOURS
     Route: 048

REACTIONS (10)
  - BACK PAIN [None]
  - ENCHONDROMA [None]
  - INFARCTION [None]
  - JOINT EFFUSION [None]
  - JOINT STIFFNESS [None]
  - LIGAMENT INJURY [None]
  - LIGAMENT RUPTURE [None]
  - NEUROPATHY PERIPHERAL [None]
  - PAIN IN EXTREMITY [None]
  - TENDONITIS [None]
